FAERS Safety Report 5540885-9 (Version None)
Quarter: 2007Q4

REPORT INFORMATION
  Report Type: 
  Country: None (occurrence: None)
  Receive Date: 20071129
  Receipt Date: 20070629
  Transmission Date: 20080405
  Serious: Yes (Other)
  Sender: FDA-Public Use
  Company Number: US200707000104

PATIENT
  Sex: Female

DRUGS (7)
  1. PROZAC [Suspect]
     Indication: DEPRESSION
     Dosage: 20 MG, DAILY (1/D); 60 MG, DAILY (1/D)
     Dates: start: 19800101
  2. ZYPREXA [Suspect]
  3. CYMBALTA [Suspect]
  4. WELLBUTRIN [Concomitant]
  5. PAXIL [Concomitant]
  6. LAMICTAL [Concomitant]
  7. TRANXENE [Concomitant]

REACTIONS (24)
  - ABNORMAL DREAMS [None]
  - AGGRESSION [None]
  - AGITATION [None]
  - ANGER [None]
  - APALLIC SYNDROME [None]
  - CRYING [None]
  - DEPRESSION [None]
  - DRUG INEFFECTIVE [None]
  - DRUG TOXICITY [None]
  - FATIGUE [None]
  - HYPERSOMNIA [None]
  - LOSS OF PROPRIOCEPTION [None]
  - MEMORY IMPAIRMENT [None]
  - MORBID THOUGHTS [None]
  - NIGHTMARE [None]
  - PHYSICAL ABUSE [None]
  - PSEUDODEMENTIA [None]
  - SCAR [None]
  - SELF INJURIOUS BEHAVIOUR [None]
  - SOCIAL AVOIDANT BEHAVIOUR [None]
  - SPEECH DISORDER [None]
  - STOMACH DISCOMFORT [None]
  - SUICIDAL IDEATION [None]
  - VIOLENCE-RELATED SYMPTOM [None]
